FAERS Safety Report 24789368 (Version 1)
Quarter: 2024Q4

REPORT INFORMATION
  Report Type: Spontaneous
  Country: BE (occurrence: BE)
  Receive Date: 20241230
  Receipt Date: 20241230
  Transmission Date: 20250115
  Serious: Yes (Hospitalization)
  Sender: JOHNSON AND JOHNSON
  Company Number: None

PATIENT
  Age: 54 Month
  Sex: Male
  Weight: 15 kg

DRUGS (1)
  1. RISPERDAL [Suspect]
     Active Substance: RISPERIDONE
     Indication: Product used for unknown indication
     Dosage: TX PRESCRIBED FOR 15 DAYS: 1ML/DAY?THE MOTHER HAD GIVEN THE TX THE FIRST 4?DAYS, AND YESTERDAY SHE G
     Route: 048

REACTIONS (3)
  - Somnolence [Unknown]
  - Overdose [Unknown]
  - Product use issue [Unknown]
